FAERS Safety Report 25667044 (Version 1)
Quarter: 2025Q3

REPORT INFORMATION
  Report Type: Report from Study
  Country: US (occurrence: US)
  Receive Date: 20250811
  Receipt Date: 20250811
  Transmission Date: 20251021
  Serious: Yes (Hospitalization, Other)
  Sender: TAIHO ONCOLOGY INC
  Company Number: US-TAIHOP-2025-008492

PATIENT
  Sex: Female

DRUGS (1)
  1. INQOVI [Suspect]
     Active Substance: CEDAZURIDINE\DECITABINE
     Indication: Neoplasm malignant
     Dosage: 135 MG (DECITABINE 35 MG PLUS CEDAZURIDINE 100 MG) DAYS 1 THROUGH 5 IN A 28-DAY TREATMENT CYCLE; CYC
     Route: 048

REACTIONS (2)
  - Pulmonary embolism [Unknown]
  - Haemoglobin decreased [Unknown]
